FAERS Safety Report 8566544 (Version 3)
Quarter: 2013Q3

REPORT INFORMATION
  Report Type: Report from Study
  Country: US (occurrence: US)
  Receive Date: 20120517
  Receipt Date: 20130903
  Transmission Date: 20140515
  Serious: Yes (Hospitalization)
  Sender: FDA-Public Use
  Company Number: PHHO2012US007297

PATIENT
  Age: 63 Year
  Sex: Male
  Weight: 109.3 kg

DRUGS (8)
  1. ALISKIREN [Suspect]
     Indication: CARDIOVASCULAR DISORDER
     Route: 048
     Dates: start: 20080826, end: 20080924
  2. ALISKIREN [Suspect]
     Route: 048
     Dates: start: 20080925, end: 20100509
  3. LISINOPRIL [Suspect]
     Indication: HYPERTENSION
     Dosage: 20 MG, QD
     Route: 048
     Dates: start: 20120322, end: 20120404
  4. METOPROLOL [Suspect]
     Indication: HYPERTENSION
     Dosage: 100 MG, QD
     Route: 048
     Dates: start: 20120228, end: 201203
  5. FLUOXETINE [Concomitant]
     Indication: DEPRESSION
     Dosage: 60 MG, QD
     Route: 048
     Dates: start: 200711
  6. HUMALOG [Concomitant]
     Indication: DIABETES MELLITUS
     Dosage: 15 U, TID
     Route: 058
     Dates: start: 20100422
  7. INSULIN GLARGINE [Concomitant]
     Indication: DIABETES MELLITUS
     Dosage: 50 U, QD
     Route: 058
     Dates: start: 20111209
  8. TRAZODONE [Concomitant]
     Indication: DISSOCIATIVE IDENTITY DISORDER
     Dosage: 150 MG, QD
     Route: 048
     Dates: start: 1998

REACTIONS (2)
  - Hypotension [Recovered/Resolved]
  - Asthenia [Recovered/Resolved]
